FAERS Safety Report 18361372 (Version 1)
Quarter: 2020Q4

REPORT INFORMATION
  Report Type: Spontaneous
  Country: DE (occurrence: DE)
  Receive Date: 20201008
  Receipt Date: 20201008
  Transmission Date: 20210114
  Serious: Yes (Hospitalization, Other)
  Sender: FDA-Public Use
  Company Number: DE-MYLANLABS-2020M1084597

PATIENT
  Age: 39 Year
  Sex: Female

DRUGS (6)
  1. OVITRELLE [Suspect]
     Active Substance: CHORIOGONADOTROPIN ALFA
     Indication: ASSISTED REPRODUCTIVE TECHNOLOGY
     Dosage: UNK
  2. ORGALUTRAN [Suspect]
     Active Substance: GANIRELIX ACETATE
     Indication: ASSISTED REPRODUCTIVE TECHNOLOGY
     Dosage: UNK
  3. CLEXANE [Concomitant]
     Active Substance: ENOXAPARIN SODIUM
     Dosage: UNK
  4. PERGOVERIS [Suspect]
     Active Substance: FOLLITROPIN\LUTROPIN ALFA
     Indication: ASSISTED REPRODUCTIVE TECHNOLOGY
     Dosage: UNK
  5. CABERGOLINE. [Suspect]
     Active Substance: CABERGOLINE
     Indication: ASSISTED REPRODUCTIVE TECHNOLOGY
     Dosage: UNK
  6. PROLUTEX [Suspect]
     Active Substance: PROGESTERONE
     Indication: ASSISTED REPRODUCTIVE TECHNOLOGY
     Dosage: UNK

REACTIONS (1)
  - Ovarian hyperstimulation syndrome [Not Recovered/Not Resolved]

NARRATIVE: CASE EVENT DATE: 20200914
